FAERS Safety Report 7366426-1 (Version None)
Quarter: 2011Q1

REPORT INFORMATION
  Report Type: 
  Country: None (occurrence: None)
  Receive Date: 20110225
  Receipt Date: 20101220
  Transmission Date: 20110831
  Serious: Yes (Hospitalization)
  Sender: FDA-Public Use
  Company Number: 320549

PATIENT
  Age: 56 Year
  Sex: Female
  Weight: 138.3 kg

DRUGS (9)
  1. LISINOPRIL [Concomitant]
  2. METHYLDOPA [Concomitant]
  3. ALDACTONE [Concomitant]
  4. MILNACIPRAN (MILNACIPRAN) [Concomitant]
  5. NEXIUM [Concomitant]
  6. FUROSEMIDE [Concomitant]
  7. LEVOTHYROXINE (LEVOTHYROXINE) [Concomitant]
  8. VICTOZA [Suspect]
     Indication: TYPE 2 DIABETES MELLITUS
     Dosage: 0.6 MG, QD, SUBCUTANEOUS, 1.2 MG, QD, SUBCUTANEOUS
     Route: 058
     Dates: start: 20101206, end: 20101213
  9. VICTOZA [Suspect]
     Indication: TYPE 2 DIABETES MELLITUS
     Dosage: 0.6 MG, QD, SUBCUTANEOUS, 1.2 MG, QD, SUBCUTANEOUS
     Route: 058
     Dates: start: 20101129, end: 20101205

REACTIONS (3)
  - PANCREATITIS [None]
  - WEIGHT DECREASED [None]
  - NAUSEA [None]
